FAERS Safety Report 9076994 (Version 1)
Quarter: 2013Q1

REPORT INFORMATION
  Report Type: Report from Study
  Country: US (occurrence: US)
  Receive Date: 20130129
  Receipt Date: 20130129
  Transmission Date: 20140127
  Serious: No
  Sender: FDA-Public Use
  Company Number: US-ABBOTT-12P-163-0949865-00

PATIENT
  Age: 35 Year
  Sex: Female

DRUGS (5)
  1. HUMIRA 40 MG/0.8 ML PEN [Suspect]
     Indication: ANKYLOSING SPONDYLITIS
     Route: 050
     Dates: start: 201205
  2. FENTANYL [Suspect]
     Indication: PAIN
  3. NASAL RINSE WITH STEROID LIQUID MIXED IN [Concomitant]
     Indication: NASAL POLYPS
  4. OXYCODONE [Concomitant]
     Indication: BREAKTHROUGH PAIN
     Dosage: 10/325 2TABS 2-3 TIMES DAILY WITH A MAX DOSE OF 6 TABS DAILY AS NEEDED
  5. FENTANYL PATCH [Concomitant]
     Indication: PAIN

REACTIONS (4)
  - Dyspnoea [Not Recovered/Not Resolved]
  - Arthralgia [Not Recovered/Not Resolved]
  - Palpitations [Not Recovered/Not Resolved]
  - Lupus-like syndrome [Not Recovered/Not Resolved]
